FAERS Safety Report 15358800 (Version 7)
Quarter: 2019Q2

REPORT INFORMATION
  Report Type: Report from Study
  Country: US (occurrence: US)
  Receive Date: 20180906
  Receipt Date: 20190626
  Transmission Date: 20190711
  Serious: Yes (Hospitalization, Other)
  Sender: FDA-Public Use
  Company Number: US-ACTELION-A-NJ2018-178542

PATIENT
  Sex: Male
  Weight: 131.52 kg

DRUGS (5)
  1. POMALYST [Concomitant]
     Active Substance: POMALIDOMIDE
     Dosage: 2 MG
     Route: 065
  2. ADCIRCA [Concomitant]
     Active Substance: TADALAFIL
  3. POMALYST [Concomitant]
     Active Substance: POMALIDOMIDE
     Dosage: UNK
     Route: 065
  4. OPSUMIT [Suspect]
     Active Substance: MACITENTAN
     Indication: PULMONARY ARTERIAL HYPERTENSION
     Dosage: 10 MG, QD
     Route: 048
  5. POMALYST [Concomitant]
     Active Substance: POMALIDOMIDE
     Dosage: 3 MG
     Route: 065

REACTIONS (8)
  - Product administration error [Unknown]
  - Nasopharyngitis [Unknown]
  - Light chain disease [Unknown]
  - Concomitant disease aggravated [Unknown]
  - Blood count abnormal [Unknown]
  - Neutropenia [Unknown]
  - Pneumonia [Unknown]
  - Plasma cell myeloma [Unknown]
